FAERS Safety Report 19714696 (Version 1)
Quarter: 2021Q3

REPORT INFORMATION
  Report Type: Spontaneous
  Country: US (occurrence: US)
  Receive Date: 20210818
  Receipt Date: 20210818
  Transmission Date: 20211014
  Serious: No
  Sender: FDA-Public Use
  Company Number: None

PATIENT
  Age: 48 Year
  Sex: Female
  Weight: 54.9 kg

DRUGS (8)
  1. VITAMIN D [Concomitant]
     Active Substance: VITAMIN D NOS
  2. MAGNESIUM [Concomitant]
     Active Substance: MAGNESIUM
  3. AIMOVIG [Suspect]
     Active Substance: ERENUMAB-AOOE
     Indication: MIGRAINE PROPHYLAXIS
     Dosage: ?          QUANTITY:1 INJECTION(S);OTHER FREQUENCY:ONCE EVERY 28 DAYS;?
     Route: 058
     Dates: start: 20210101, end: 20210817
  4. ESTRADIOL. [Concomitant]
     Active Substance: ESTRADIOL
  5. BUPROPRION [Concomitant]
     Active Substance: BUPROPION
  6. MULTIVITAMIN [Concomitant]
     Active Substance: VITAMINS
  7. TESTOSTERONE. [Concomitant]
     Active Substance: TESTOSTERONE
  8. BORON [Concomitant]
     Active Substance: BORON

REACTIONS (3)
  - Injection site urticaria [None]
  - Skin warm [None]
  - Injection site pruritus [None]

NARRATIVE: CASE EVENT DATE: 20210817
